FAERS Safety Report 8118456-X (Version None)
Quarter: 2012Q1

REPORT INFORMATION
  Report Type: 
  Country: None (occurrence: None)
  Receive Date: 20120207
  Receipt Date: 20120131
  Transmission Date: 20120608
  Serious: Yes (Other)
  Sender: FDA-Public Use
  Company Number: US-JNJFOC-20120105615

PATIENT
  Age: 80 Year
  Sex: Female
  Weight: 52.62 kg

DRUGS (4)
  1. EXTRA STRENGTH TYLENOL [Suspect]
     Route: 048
  2. PREDNISONE TAB [Concomitant]
     Indication: RHEUMATOID ARTHRITIS
     Dosage: 30 YEARS
     Route: 065
  3. EXTRA STRENGTH TYLENOL [Suspect]
     Indication: RHEUMATOID ARTHRITIS
     Dosage: 2 CAPLETS  THREE TIMES A DAY
     Route: 048
  4. METHOTREXATE [Concomitant]
     Indication: RHEUMATOID ARTHRITIS
     Dosage: 3 PILLS FOR 30 YEARS
     Route: 065

REACTIONS (1)
  - HAEMATEMESIS [None]
